FAERS Safety Report 4950623-6 (Version None)
Quarter: 2006Q1

REPORT INFORMATION
  Report Type: 
  Country: None (occurrence: None)
  Receive Date: 20060322
  Receipt Date: 20051007
  Transmission Date: 20060701
  Serious: Yes (Hospitalization, Disabling)
  Sender: FDA-Public Use
  Company Number: US-MERCK-0510USA06287

PATIENT
  Age: 52 Year
  Sex: Female
  Weight: 80 kg

DRUGS (1)
  1. VIOXX [Suspect]
     Indication: BONE PAIN
     Route: 048
     Dates: start: 20040101, end: 20040301

REACTIONS (1)
  - CEREBROVASCULAR ACCIDENT [None]
